FAERS Safety Report 11391506 (Version 1)
Quarter: 2015Q3

REPORT INFORMATION
  Report Type: Spontaneous
  Country: JP (occurrence: JP)
  Receive Date: 20150818
  Receipt Date: 20150818
  Transmission Date: 20151125
  Serious: Yes (Hospitalization)
  Sender: FDA-Public Use
  Company Number: JP-PFIZER INC-2015268901

PATIENT
  Age: 64 Year
  Weight: 58 kg

DRUGS (37)
  1. ELPLAT [Suspect]
     Active Substance: OXALIPLATIN
     Dosage: 141.95 MG, 1X/DAY, (85.3 MG/M2), CYCLIC
     Route: 041
     Dates: start: 20150212, end: 20150212
  2. ELPLAT [Suspect]
     Active Substance: OXALIPLATIN
     Dosage: 141.95 MG, 1X/DAY, (85.3 MG/M2), CYCLIC
     Route: 041
     Dates: start: 20150423, end: 20150423
  3. CAMPTO [Suspect]
     Active Substance: IRINOTECAN
     Dosage: 125.25 MG, 1X/DAY (75.3 MG/M2), CYCLIC
     Route: 041
     Dates: start: 20150312, end: 20150312
  4. CAMPTO [Suspect]
     Active Substance: IRINOTECAN
     Dosage: 125.25 MG, 1X/DAY (75.3 MG/M2), CYCLIC
     Route: 041
     Dates: start: 20150507, end: 20150507
  5. CAMPTO [Suspect]
     Active Substance: IRINOTECAN
     Indication: PANCREATIC CARCINOMA
     Dosage: 125.25 MG, 1X/DAY (75.3 MG/M2), CYCLIC
     Route: 041
     Dates: start: 20141215, end: 20141215
  6. ELPLAT [Suspect]
     Active Substance: OXALIPLATIN
     Dosage: 141.95 MG, 1X/DAY, (85.3 MG/M2), CYCLIC
     Route: 041
     Dates: start: 20150226, end: 20150226
  7. ELPLAT [Suspect]
     Active Substance: OXALIPLATIN
     Dosage: 141.95 MG, 1X/DAY, (85.3 MG/M2), CYCLIC
     Route: 041
     Dates: start: 20150312, end: 20150312
  8. ELPLAT [Suspect]
     Active Substance: OXALIPLATIN
     Dosage: 141.95 MG, 1X/DAY, (85.3 MG/M2), CYCLIC
     Route: 041
     Dates: start: 20150507, end: 20150507
  9. LEVOFOLINATE YAKULT [Suspect]
     Active Substance: LEVOLEUCOVORIN CALCIUM
     Dosage: 334 MG, 1X/DAY, (200.7 MG/M2), CYCLIC
     Route: 041
     Dates: start: 20150113, end: 20150113
  10. LEVOFOLINATE YAKULT [Suspect]
     Active Substance: LEVOLEUCOVORIN CALCIUM
     Dosage: 334 MG, 1X/DAY, (200.7 MG/M2), CYCLIC
     Route: 041
     Dates: start: 20150604
  11. CAMPTO [Suspect]
     Active Substance: IRINOTECAN
     Dosage: 125.25 MG, 1X/DAY (75.3 MG/M2), CYCLIC
     Route: 041
     Dates: start: 20150226, end: 20150226
  12. ELPLAT [Suspect]
     Active Substance: OXALIPLATIN
     Indication: PANCREATIC CARCINOMA
     Dosage: 141.95 MG, 1X/DAY, (85.3 MG/M2), CYCLIC
     Route: 041
     Dates: start: 20141215, end: 20141215
  13. LEVOFOLINATE YAKULT [Suspect]
     Active Substance: LEVOLEUCOVORIN CALCIUM
     Dosage: 334 MG, 1X/DAY, (200.7 MG/M2), CYCLIC
     Route: 041
     Dates: start: 20150226, end: 20150226
  14. LEVOFOLINATE YAKULT [Suspect]
     Active Substance: LEVOLEUCOVORIN CALCIUM
     Dosage: 334 MG, 1X/DAY, (200.7 MG/M2), CYCLIC
     Route: 041
     Dates: start: 20150521, end: 20150521
  15. CAMPTO [Suspect]
     Active Substance: IRINOTECAN
     Dosage: 125.25 MG, 1X/DAY (75.3 MG/M2), CYCLIC
     Route: 041
     Dates: start: 20150129, end: 20150129
  16. CAMPTO [Suspect]
     Active Substance: IRINOTECAN
     Dosage: 125.25 MG, 1X/DAY (75.3 MG/M2), CYCLIC
     Route: 041
     Dates: start: 20150409, end: 20150409
  17. CAMPTO [Suspect]
     Active Substance: IRINOTECAN
     Dosage: 125.25 MG, 1X/DAY (75.3 MG/M2), CYCLIC
     Route: 041
     Dates: start: 20150604
  18. LEVOFOLINATE YAKULT [Suspect]
     Active Substance: LEVOLEUCOVORIN CALCIUM
     Dosage: 334 MG, 1X/DAY, (200.7 MG/M2), CYCLIC
     Route: 041
     Dates: start: 20150212, end: 20150212
  19. LEVOFOLINATE YAKULT [Suspect]
     Active Substance: LEVOLEUCOVORIN CALCIUM
     Dosage: 334 MG, 1X/DAY, (200.7 MG/M2), CYCLIC
     Route: 041
     Dates: start: 20150326, end: 20150326
  20. CAMPTO [Suspect]
     Active Substance: IRINOTECAN
     Dosage: 125.25 MG, 1X/DAY (75.3 MG/M2), CYCLIC
     Route: 041
     Dates: start: 20150423, end: 20150423
  21. ELPLAT [Suspect]
     Active Substance: OXALIPLATIN
     Dosage: 141.95 MG, 1X/DAY, (85.3 MG/M2), CYCLIC
     Route: 041
     Dates: start: 20150113, end: 20150113
  22. ELPLAT [Suspect]
     Active Substance: OXALIPLATIN
     Dosage: 141.95 MG, 1X/DAY, (85.3 MG/M2), CYCLIC
     Route: 041
     Dates: start: 20150129, end: 20150129
  23. ELPLAT [Suspect]
     Active Substance: OXALIPLATIN
     Dosage: 141.95 MG, 1X/DAY, (85.3 MG/M2), CYCLIC
     Route: 041
     Dates: start: 20150521, end: 20150521
  24. LEVOFOLINATE YAKULT [Suspect]
     Active Substance: LEVOLEUCOVORIN CALCIUM
     Dosage: 334 MG, 1X/DAY, (200.7 MG/M2), CYCLIC
     Route: 041
     Dates: start: 20150312, end: 20150312
  25. LEVOFOLINATE YAKULT [Suspect]
     Active Substance: LEVOLEUCOVORIN CALCIUM
     Dosage: 334 MG, 1X/DAY, (200.7 MG/M2), CYCLIC
     Route: 041
     Dates: start: 20150409, end: 20150409
  26. CAMPTO [Suspect]
     Active Substance: IRINOTECAN
     Dosage: 125.25 MG, 1X/DAY (75.3 MG/M2), CYCLIC
     Route: 041
     Dates: start: 20140113, end: 20140113
  27. CAMPTO [Suspect]
     Active Substance: IRINOTECAN
     Dosage: 125.25 MG, 1X/DAY (75.3 MG/M2), CYCLIC
     Route: 041
     Dates: start: 20150212, end: 20150212
  28. CAMPTO [Suspect]
     Active Substance: IRINOTECAN
     Dosage: 125.25 MG, 1X/DAY (75.3 MG/M2), CYCLIC
     Route: 041
     Dates: start: 20150326, end: 20150326
  29. ELPLAT [Suspect]
     Active Substance: OXALIPLATIN
     Dosage: 141.95 MG, 1X/DAY, (85.3 MG/M2), CYCLIC
     Route: 041
     Dates: start: 20150604
  30. LEVOFOLINATE YAKULT [Suspect]
     Active Substance: LEVOLEUCOVORIN CALCIUM
     Dosage: 334 MG, 1X/DAY, (200.7 MG/M2), CYCLIC
     Route: 041
     Dates: start: 20150423, end: 20150423
  31. LEVOFOLINATE YAKULT [Suspect]
     Active Substance: LEVOLEUCOVORIN CALCIUM
     Dosage: 334 MG, 1X/DAY, (200.7 MG/M2), CYCLIC
     Route: 041
     Dates: start: 20150507, end: 20150507
  32. CAMPTO [Suspect]
     Active Substance: IRINOTECAN
     Dosage: 125.25 MG, 1X/DAY (75.3 MG/M2), CYCLIC
     Route: 041
     Dates: start: 20150521, end: 20150521
  33. ELPLAT [Suspect]
     Active Substance: OXALIPLATIN
     Dosage: 141.95 MG, 1X/DAY, (85.3 MG/M2), CYCLIC
     Route: 041
     Dates: start: 20150326, end: 20150326
  34. ELPLAT [Suspect]
     Active Substance: OXALIPLATIN
     Dosage: 141.95 MG, 1X/DAY, (85.3 MG/M2), CYCLIC
     Route: 041
     Dates: start: 20150409, end: 20150409
  35. LEVOFOLINATE YAKULT [Suspect]
     Active Substance: LEVOLEUCOVORIN CALCIUM
     Indication: PANCREATIC CARCINOMA
     Dosage: 334 MG, 1X/DAY, (200.7 MG/M2), CYCLIC
     Route: 041
     Dates: start: 20141215, end: 20141215
  36. LEVOFOLINATE YAKULT [Suspect]
     Active Substance: LEVOLEUCOVORIN CALCIUM
     Dosage: 334 MG, 1X/DAY, (200.7 MG/M2), CYCLIC
     Route: 041
     Dates: start: 20150129, end: 20150129
  37. 5-FU [Concomitant]
     Active Substance: FLUOROURACIL
     Indication: PANCREATIC CARCINOMA
     Dosage: 2408.7 MG/M2, (4008 MG/BODY/D1-2), CONTINUOUS INFUSION, CYCLIC
     Dates: start: 20141215, end: 20150604

REACTIONS (7)
  - Neutrophil count decreased [Unknown]
  - Pyrexia [Unknown]
  - Biliary tract infection [Unknown]
  - Peripheral sensory neuropathy [Unknown]
  - Alanine aminotransferase increased [Unknown]
  - Stomatitis [Unknown]
  - Aspartate aminotransferase increased [Unknown]

NARRATIVE: CASE EVENT DATE: 20150102
